FAERS Safety Report 5258067-7 (Version None)
Quarter: 2007Q1

REPORT INFORMATION
  Report Type: 
  Country: None (occurrence: None)
  Receive Date: 20070307
  Receipt Date: 20070222
  Transmission Date: 20070707
  Serious: Yes (Hospitalization)
  Sender: FDA-Public Use
  Company Number: US-SHR-US-2007-006399

PATIENT
  Age: 56 Year
  Sex: Female

DRUGS (3)
  1. BETASERON [Suspect]
     Dosage: 8 MIU, EVERY 2D
     Route: 058
     Dates: start: 20000323, end: 20041111
  2. BETASERON [Suspect]
     Route: 058
     Dates: start: 20050620, end: 20070113
  3. BETASERON [Suspect]
     Dosage: 8 MIU, EVERY 2D
     Route: 058
     Dates: start: 20070128

REACTIONS (3)
  - HYPERHIDROSIS [None]
  - MULTIPLE SCLEROSIS [None]
  - NAUSEA [None]
